FAERS Safety Report 9466419 (Version 2)
Quarter: 2013Q3

REPORT INFORMATION
  Report Type: Spontaneous
  Country: ZA (occurrence: ZA)
  Receive Date: 20130820
  Receipt Date: 20130827
  Transmission Date: 20140515
  Serious: Yes (Death, Other)
  Sender: FDA-Public Use
  Company Number: ZA-ABBOTT-13P-143-1134711-00

PATIENT
  Age: 4 Day
  Sex: Male
  Weight: 1.1 kg

DRUGS (1)
  1. SURVANTA [Suspect]
     Indication: PRODUCT USED FOR UNKNOWN INDICATION
     Dosage: ONE DOSE

REACTIONS (4)
  - Pulmonary haemorrhage [Fatal]
  - Sepsis neonatal [Fatal]
  - Disseminated intravascular coagulation [Unknown]
  - Thrombocytopenia [Unknown]
